FAERS Safety Report 4747430-6 (Version None)
Quarter: 2005Q3

REPORT INFORMATION
  Report Type: 
  Country: None (occurrence: None)
  Receive Date: 20050815
  Receipt Date: 20050513
  Transmission Date: 20060218
  Serious: No
  Sender: FDA-Public Use
  Company Number: US_0505116716

PATIENT
  Age: 63 Year
  Sex: Male

DRUGS (3)
  1. CIALIS [Suspect]
  2. ATENOLOL [Concomitant]
  3. ASPIRIN [Concomitant]

REACTIONS (2)
  - DRUG INTERACTION [None]
  - HYPOTENSION [None]
